FAERS Safety Report 15321293 (Version 4)
Quarter: 2020Q1

REPORT INFORMATION
  Report Type: Spontaneous
  Country: US (occurrence: US)
  Receive Date: 20180827
  Receipt Date: 20200221
  Transmission Date: 20200409
  Serious: No
  Sender: FDA-Public Use
  Company Number: US-SA-2018SA234915

PATIENT
  Age: 19 Year
  Sex: Male

DRUGS (4)
  1. FABRAZYME [Suspect]
     Active Substance: AGALSIDASE BETA
     Dosage: 45 MG, QOW
     Route: 041
     Dates: start: 20171118
  2. FABRAZYME [Suspect]
     Active Substance: AGALSIDASE BETA
     Dosage: 10 MG, QOW
     Route: 041
     Dates: start: 2015
  3. FABRAZYME [Suspect]
     Active Substance: AGALSIDASE BETA
     Indication: FABRY^S DISEASE
     Dosage: 45 MG, QOW
     Route: 041
     Dates: start: 20151117
  4. FABRAZYME [Suspect]
     Active Substance: AGALSIDASE BETA
     Dosage: 35 MG, QOW
     Route: 041
     Dates: start: 2015

REACTIONS (6)
  - Hunger [Unknown]
  - Blood pressure decreased [Unknown]
  - Product dose omission [Unknown]
  - Pyrexia [Unknown]
  - Dizziness [Unknown]
  - Burning sensation [Unknown]

NARRATIVE: CASE EVENT DATE: 20181218
